FAERS Safety Report 11787065 (Version 1)
Quarter: 2015Q4

REPORT INFORMATION
  Report Type: Spontaneous
  Country: US (occurrence: US)
  Receive Date: 20151120
  Receipt Date: 20151120
  Transmission Date: 20160305
  Serious: No
  Sender: FDA-Public Use
  Company Number: US-GILEAD-2015-0183069

PATIENT
  Sex: Female

DRUGS (2)
  1. RANEXA [Suspect]
     Active Substance: RANOLAZINE
     Indication: PRODUCT USED FOR UNKNOWN INDICATION
     Dosage: 500 MG, UNK
     Route: 065
  2. RANEXA [Suspect]
     Active Substance: RANOLAZINE
     Dosage: 1000 MG, BID
     Route: 065
     Dates: start: 2014

REACTIONS (4)
  - Therapeutic response unexpected [Unknown]
  - Tinnitus [Unknown]
  - Dizziness [Unknown]
  - Heart rate irregular [Unknown]
